FAERS Safety Report 4574735-4 (Version None)
Quarter: 2005Q1

REPORT INFORMATION
  Report Type: 
  Country: None (occurrence: None)
  Receive Date: 20050118
  Receipt Date: 20040303
  Transmission Date: 20050727
  Serious: Yes (Other)
  Sender: FDA-Public Use
  Company Number: HQWYE611505MAR04

PATIENT
  Age: 50 Year
  Sex: Female

DRUGS (3)
  1. PREMPRO [Suspect]
     Indication: HORMONE REPLACEMENT THERAPY
     Dosage: ORAL
     Route: 048
     Dates: start: 19940101, end: 19950701
  2. ESTRATEST [Suspect]
     Indication: HORMONE REPLACEMENT THERAPY
     Dates: start: 19940101, end: 20010101
  3. PREMPRO [Suspect]
     Dosage: ORAL
     Route: 048
     Dates: start: 20010101, end: 20020610

REACTIONS (1)
  - DEEP VEIN THROMBOSIS [None]
